FAERS Safety Report 19686027 (Version 6)
Quarter: 2022Q1

REPORT INFORMATION
  Report Type: Spontaneous
  Country: US (occurrence: US)
  Receive Date: 20210811
  Receipt Date: 20220328
  Transmission Date: 20220424
  Serious: Yes (Hospitalization)
  Sender: FDA-Public Use
  Company Number: US-KARYOPHARM-2021KPT000914

PATIENT

DRUGS (2)
  1. XPOVIO [Suspect]
     Active Substance: SELINEXOR
     Indication: Plasma cell myeloma
     Dosage: 60 MG, WEEKLY
     Route: 048
     Dates: start: 20210707, end: 20220309
  2. XPOVIO [Suspect]
     Active Substance: SELINEXOR
     Dosage: 60 MG, WEEKLY
     Route: 048
     Dates: start: 202203

REACTIONS (13)
  - Fall [Unknown]
  - Rib fracture [Unknown]
  - Blood potassium decreased [Unknown]
  - Skin burning sensation [Unknown]
  - Migraine [Not Recovered/Not Resolved]
  - Weight increased [Unknown]
  - Thirst [Unknown]
  - Pollakiuria [Unknown]
  - COVID-19 [Unknown]
  - Limb injury [Not Recovered/Not Resolved]
  - Peripheral coldness [Unknown]
  - Blood glucose decreased [Unknown]
  - Diarrhoea [Not Recovered/Not Resolved]

NARRATIVE: CASE EVENT DATE: 20210701
